FAERS Safety Report 5723352-9 (Version None)
Quarter: 2008Q2

REPORT INFORMATION
  Report Type: 
  Country: None (occurrence: None)
  Receive Date: 20080425
  Receipt Date: 20080414
  Transmission Date: 20081010
  Serious: Yes (Hospitalization)
  Sender: FDA-Public Use
  Company Number: 2008BI002360

PATIENT
  Age: 45 Year
  Sex: Male
  Weight: 89 kg

DRUGS (2)
  1. AVONEX [Suspect]
     Indication: MULTIPLE SCLEROSIS
     Dosage: 30 UG; QW; IM
     Route: 030
     Dates: start: 20070901
  2. LYRICA [Concomitant]

REACTIONS (2)
  - HEADACHE [None]
  - MYOCARDIAL INFARCTION [None]
